FAERS Safety Report 4723661-6 (Version None)
Quarter: 2005Q3

REPORT INFORMATION
  Report Type: 
  Country: None (occurrence: None)
  Receive Date: 20050722
  Receipt Date: 20050713
  Transmission Date: 20060218
  Serious: Yes (Hospitalization, Other)
  Sender: FDA-Public Use
  Company Number: 05-07-1188

PATIENT
  Age: 73 Year
  Sex: Female

DRUGS (1)
  1. CLOZAPINE [Suspect]
     Indication: SCHIZOPHRENIA
     Dosage: 150-300MG QD ORAL
     Route: 048
     Dates: start: 20020901

REACTIONS (2)
  - PNEUMONIA [None]
  - URINARY TRACT INFECTION [None]
